FAERS Safety Report 22379419 (Version 6)
Quarter: 2024Q1

REPORT INFORMATION
  Report Type: Spontaneous
  Country: CA (occurrence: CA)
  Receive Date: 20230529
  Receipt Date: 20240213
  Transmission Date: 20240410
  Serious: Yes (Other)
  Sender: FDA-Public Use
  Company Number: CA-PFIZER INC-202300200897

PATIENT
  Age: 14 Year
  Sex: Male
  Weight: 50 kg

DRUGS (10)
  1. SOMATROPIN [Suspect]
     Active Substance: SOMATROPIN
     Indication: Growth hormone deficiency
     Dosage: 1.5 MG (GOQUICK 1.5 MG FOR 6 DAYS/WEEK 12 MG/ML PEN)
     Route: 058
     Dates: start: 20230210, end: 2023
  2. SOMATROPIN [Suspect]
     Active Substance: SOMATROPIN
     Dosage: 1.65 MG (GOQUICK 1.65 MG FOR 6 DAYS/WEEK 12 MG/ML PEN)
     Route: 058
     Dates: start: 2023
  3. SOMATROPIN [Suspect]
     Active Substance: SOMATROPIN
     Dosage: 0.18 MG/KG, WEEKLY
     Route: 058
     Dates: start: 20240130
  4. CLONAZEPAM [Concomitant]
     Active Substance: CLONAZEPAM
     Dosage: 1 DF (0.25 MG)
  5. CLONIDINE [Concomitant]
     Active Substance: CLONIDINE
     Dosage: 3 DF, DAILY (100MCG IN AM AND 200 MCG PM)
  6. CLONIDINE [Concomitant]
     Active Substance: CLONIDINE
     Dosage: 1 DF (100MCG IN AM AND 200 MCG PM)
  7. DEXACOM [Concomitant]
     Dosage: 1 DF
  8. FUXETINE [Concomitant]
     Dosage: 30 MG
  9. INSULIN NOS [Concomitant]
     Active Substance: INSULIN NOS
     Dosage: 1 DF
  10. VYVANSE [Concomitant]
     Active Substance: LISDEXAMFETAMINE DIMESYLATE
     Dosage: 30 MG

REACTIONS (3)
  - Lower limb fracture [Recovering/Resolving]
  - Drug ineffective [Unknown]
  - Weight decreased [Unknown]

NARRATIVE: CASE EVENT DATE: 20230101
